FAERS Safety Report 9852314 (Version 1)
Quarter: 2014Q1

REPORT INFORMATION
  Report Type: Spontaneous
  Country: US (occurrence: US)
  Receive Date: 20140129
  Receipt Date: 20140129
  Transmission Date: 20141002
  Serious: Yes (Life-Threatening, Hospitalization, Other)
  Sender: FDA-Public Use
  Company Number: US-ELI_LILLY_AND_COMPANY-US201401007461

PATIENT
  Age: 69 Year
  Sex: Female

DRUGS (18)
  1. FLUOXETINE HYDROCHLORIDE [Suspect]
     Indication: PRODUCT USED FOR UNKNOWN INDICATION
     Dosage: 20 MG, QD
     Route: 065
  2. RANOLAZINE [Suspect]
     Indication: PRODUCT USED FOR UNKNOWN INDICATION
     Dosage: 500 MG, QD
     Route: 065
  3. CIMETIDINE [Concomitant]
     Indication: PRODUCT USED FOR UNKNOWN INDICATION
     Dosage: 300 MG, QD
     Route: 065
  4. ATORVASTATIN [Concomitant]
     Dosage: 80 MG, EACH EVENING
     Route: 065
  5. POTASSIUM CHLORIDE [Concomitant]
     Dosage: 20 MEQ, QD
     Route: 065
  6. POTASSIUM CHLORIDE [Concomitant]
     Dosage: 40 MEQ, OTHER
     Route: 042
  7. LOSARTAN [Concomitant]
     Dosage: 100 MG, QD
     Route: 065
  8. AMLODIPINE [Concomitant]
     Dosage: 5 MG, QD
     Route: 065
  9. ALPRAZOLAM [Concomitant]
     Dosage: 0.25 MG, TID
     Route: 065
  10. ATENOLOL [Concomitant]
     Dosage: 100 MG, QD
     Route: 065
  11. ISOSORBIDE [Concomitant]
     Dosage: 60 MG, QD
     Route: 065
  12. CLOPIDOGREL [Concomitant]
     Dosage: 75 MG, QD
     Route: 065
  13. BUMETANIDE [Concomitant]
     Dosage: 1 MG, QD
     Route: 065
  14. ALBUTEROL [Concomitant]
     Dosage: UNK UNK, PRN
     Route: 055
  15. ATROVENT [Concomitant]
     Dosage: UNK, PRN
     Route: 055
  16. MELOXICAM [Concomitant]
     Dosage: 15 MG, QD
     Route: 065
  17. PANTOPRAZOLE [Concomitant]
     Dosage: 40 MG, QD
     Route: 065
  18. NITROGLYCERIN [Concomitant]
     Dosage: UNK, PRN
     Route: 065

REACTIONS (9)
  - Torsade de pointes [Recovered/Resolved]
  - Cardio-respiratory arrest [Recovered/Resolved]
  - Angina pectoris [Unknown]
  - Bradycardia [Unknown]
  - Hypomagnesaemia [Unknown]
  - Hypokalaemia [Unknown]
  - Urinary tract infection [Unknown]
  - Pyrexia [Unknown]
  - Vomiting [Unknown]
